FAERS Safety Report 7113324-4 (Version None)
Quarter: 2010Q4

REPORT INFORMATION
  Report Type: 
  Country: None (occurrence: None)
  Receive Date: 20101119
  Receipt Date: 20100920
  Transmission Date: 20110411
  Serious: No
  Sender: FDA-Public Use
  Company Number: A0882080A

PATIENT
  Age: 63 Year
  Sex: Male

DRUGS (2)
  1. WELLBUTRIN SR [Suspect]
     Dosage: 150MG PER DAY
     Route: 048
     Dates: start: 20020101
  2. BLOOD PRESSURE MEDICATION [Concomitant]

REACTIONS (6)
  - ABDOMINAL DISCOMFORT [None]
  - CONFUSIONAL STATE [None]
  - DIZZINESS [None]
  - NERVOUSNESS [None]
  - PRODUCT QUALITY ISSUE [None]
  - TINNITUS [None]
